FAERS Safety Report 16710492 (Version 1)
Quarter: 2019Q3

REPORT INFORMATION
  Report Type: Spontaneous
  Country: US (occurrence: US)
  Receive Date: 20190816
  Receipt Date: 20190816
  Transmission Date: 20191004
  Serious: No
  Sender: FDA-Public Use
  Company Number: US-PFIZER INC-2019349781

PATIENT
  Sex: Male

DRUGS (1)
  1. LYRICA [Suspect]
     Active Substance: PREGABALIN
     Dosage: 900 MG, DAILY (LYRICA 150MG CAPSULE / QUANTITY 180/DAY SUPPLY 30)

REACTIONS (4)
  - Pain in extremity [Unknown]
  - Prescribed overdose [Unknown]
  - Paraesthesia [Unknown]
  - Hypoaesthesia [Unknown]
